FAERS Safety Report 24588375 (Version 1)
Quarter: 2024Q4

REPORT INFORMATION
  Report Type: Spontaneous
  Country: US (occurrence: US)
  Receive Date: 20241107
  Receipt Date: 20241107
  Transmission Date: 20250115
  Serious: No
  Sender: INSMED
  Company Number: US-INSMED, INC.-2024-02569-US

PATIENT
  Sex: Female

DRUGS (1)
  1. ARIKAYCE [Suspect]
     Active Substance: AMIKACIN
     Indication: Mycobacterium avium complex infection
     Dosage: UNK, UNK, UNK
     Route: 055

REACTIONS (5)
  - Oxygen saturation decreased [Unknown]
  - Adverse event [Unknown]
  - Unevaluable event [Unknown]
  - Productive cough [Unknown]
  - Therapy interrupted [Unknown]
